FAERS Safety Report 13755942 (Version 3)
Quarter: 2017Q3

REPORT INFORMATION
  Report Type: Spontaneous
  Country: US (occurrence: US)
  Receive Date: 20170714
  Receipt Date: 20170815
  Transmission Date: 20171127
  Serious: Yes (Other)
  Sender: FDA-Public Use
  Company Number: PHEH2017US020935

PATIENT
  Sex: Female
  Weight: 94.8 kg

DRUGS (10)
  1. CLONIDINE. [Concomitant]
     Active Substance: CLONIDINE
     Indication: HYPERTENSION
     Dosage: UNK (0.3 PATCH CHANGE EVERY WEEK)
     Route: 065
  2. ZOMETA [Suspect]
     Active Substance: ZOLEDRONIC ACID
     Indication: METASTASES TO BONE
     Dosage: EVERY 3 MONTHS
     Route: 042
  3. ZOMETA [Suspect]
     Active Substance: ZOLEDRONIC ACID
     Indication: BREAST CANCER METASTATIC
     Dosage: 4 MG, QW4
     Route: 042
  4. IBRANCE [Suspect]
     Active Substance: PALBOCICLIB
     Indication: BREAST CANCER METASTATIC
     Dosage: 125 MG, UNK (3 WEEKS ON AND ONE WEEK OFF)
     Route: 048
     Dates: start: 201703
  5. DIOVAN [Concomitant]
     Active Substance: VALSARTAN
     Indication: BLOOD PRESSURE ABNORMAL
     Dosage: 320 MG, QD
     Route: 048
  6. GUANFACINE. [Concomitant]
     Active Substance: GUANFACINE
     Indication: BLOOD PRESSURE ABNORMAL
     Dosage: 1 MG, QD
     Route: 048
  7. PRAVASTATIN. [Concomitant]
     Active Substance: PRAVASTATIN
     Indication: BLOOD CHOLESTEROL ABNORMAL
     Dosage: 40 MG, QD
     Route: 048
  8. FASLODEX [Concomitant]
     Active Substance: FULVESTRANT
     Indication: BREAST CANCER METASTATIC
     Dosage: UNK
     Route: 065
     Dates: start: 20170327
  9. ATENOLOL. [Concomitant]
     Active Substance: ATENOLOL
     Indication: BLOOD PRESSURE ABNORMAL
     Dosage: 25 MG, QD (HALF A TABLET IN MORNING AND HALF AT NIGHT)
     Route: 048
  10. AMLODIPINE [Concomitant]
     Active Substance: AMLODIPINE BESYLATE
     Indication: BLOOD PRESSURE ABNORMAL
     Dosage: 10 MG, QD
     Route: 048

REACTIONS (5)
  - Osteonecrosis of jaw [Unknown]
  - Tooth loss [Recovered/Resolved]
  - Inappropriate schedule of drug administration [Unknown]
  - Bone density increased [Unknown]
  - Full blood count decreased [Recovering/Resolving]

NARRATIVE: CASE EVENT DATE: 2016
